FAERS Safety Report 6246152-2 (Version None)
Quarter: 2009Q2

REPORT INFORMATION
  Report Type: 
  Country: None (occurrence: None)
  Receive Date: 20090626
  Receipt Date: 20090522
  Transmission Date: 20091009
  Serious: No
  Sender: FDA-Public Use
  Company Number: A0783222A

PATIENT
  Age: 37 Year
  Sex: Male
  Weight: 111.4 kg

DRUGS (8)
  1. IMITREX [Suspect]
     Indication: MIGRAINE
     Dosage: 50MG PER DAY
     Route: 048
     Dates: start: 20090507
  2. HYDROCHLOROTHIAZIDE [Concomitant]
     Indication: HYPERTENSION
     Dosage: 25MG PER DAY
     Route: 048
     Dates: start: 20030101
  3. LOVASTATIN [Concomitant]
     Dosage: 40MG PER DAY
     Route: 048
     Dates: start: 20090101
  4. ATENOLOL [Concomitant]
     Indication: DRUG USE FOR UNKNOWN INDICATION
     Dosage: 50MG PER DAY
     Route: 048
     Dates: start: 20030101
  5. ASPIRIN [Concomitant]
     Indication: ANTICOAGULANT THERAPY
     Dosage: 81MG PER DAY
     Route: 048
     Dates: start: 20050101
  6. LORATADINE [Concomitant]
     Indication: MULTIPLE ALLERGIES
     Dosage: 20MG PER DAY
     Route: 048
     Dates: start: 20090101
  7. TYLENOL (CAPLET) [Concomitant]
     Indication: HEADACHE
     Dosage: 650MG AS REQUIRED
     Route: 048
     Dates: start: 20060101
  8. IBUPROFEN [Concomitant]
     Indication: MUSCULOSKELETAL DISORDER
     Dosage: 800MG AS REQUIRED
     Route: 048
     Dates: start: 20050101

REACTIONS (2)
  - HEADACHE [None]
  - MUSCLE CONTRACTIONS INVOLUNTARY [None]
